FAERS Safety Report 8501463 (Version 3)
Quarter: 2013Q1

REPORT INFORMATION
  Report Type: Spontaneous
  Country: US (occurrence: US)
  Receive Date: 20120410
  Receipt Date: 20130114
  Transmission Date: 20140127
  Serious: Yes (Life-Threatening, Hospitalization)
  Sender: FDA-Public Use
  Company Number: US-BAYER-2012-032397

PATIENT
  Age: 28 Year
  Sex: Female
  Weight: 76.19 kg

DRUGS (4)
  1. YASMIN [Suspect]
     Dosage: UNK
     Route: 048
     Dates: start: 201005, end: 201008
  2. THYROXINE [Concomitant]
     Indication: HYPOTHYROIDISM
     Dosage: 0.125 MG, QD
  3. LEVOTHYROXIN [Concomitant]
  4. PROMETHAZINE [Concomitant]

REACTIONS (10)
  - Pulmonary embolism [None]
  - Pain [None]
  - Injury [None]
  - General physical health deterioration [None]
  - Emotional distress [None]
  - Anxiety [None]
  - Activities of daily living impaired [None]
  - Respiratory failure [None]
  - Dyspnoea [None]
  - Weight increased [None]
